FAERS Safety Report 7600485-3 (Version None)
Quarter: 2011Q3

REPORT INFORMATION
  Report Type: 
  Country: None (occurrence: None)
  Receive Date: 20110706
  Receipt Date: 20110706
  Transmission Date: 20111222
  Serious: No
  Sender: FDA-Public Use
  Company Number: None

PATIENT
  Age: 65 Year
  Sex: Female
  Weight: 71.6683 kg

DRUGS (1)
  1. AZITHROMYCIN [Suspect]
     Indication: BRONCHITIS
     Dosage: 250MG DAY1 = 2 TABS DAY2-5 = 1 PER DAY ORAL
     Route: 048
     Dates: start: 20110625, end: 20110630

REACTIONS (3)
  - IRRITABLE BOWEL SYNDROME [None]
  - BLISTER [None]
  - ERYTHEMA [None]
